FAERS Safety Report 5280952-0 (Version None)
Quarter: 2007Q1

REPORT INFORMATION
  Report Type: 
  Country: None (occurrence: None)
  Receive Date: 20070329
  Receipt Date: 20070319
  Transmission Date: 20070707
  Serious: Yes (Hospitalization, Other)
  Sender: FDA-Public Use
  Company Number: US-SHR-US-2007-007052

PATIENT
  Age: 50 Year
  Sex: Female
  Weight: 92.971 kg

DRUGS (12)
  1. BETASERON [Suspect]
     Indication: RELAPSING-REMITTING MULTIPLE SCLEROSIS
     Dosage: 8 MIU, EVERY 2D
     Route: 058
     Dates: start: 20031119, end: 20070211
  2. IMMUNOGLOBULINS [Concomitant]
     Dosage: UNK, 1X/MONTH
     Route: 042
  3. OXYBUTYNIN CHLORIDE [Concomitant]
     Dosage: UNK, 4X/DAY
  4. BACTRIM [Concomitant]
     Dosage: UNK, 2X/DAY
  5. THEOPHYLLINE [Concomitant]
     Dosage: 300 MG, UNK
  6. XANAX [Concomitant]
     Dosage: 1 MG, UNK
  7. NEXIUM [Concomitant]
     Dosage: 40 MG, UNK
  8. BACLOFEN [Concomitant]
     Dosage: EVERY 4H, AS REQUIRED
  9. ZELNORM                                 /USA/ [Concomitant]
     Dosage: 6 MG, 3X/DAY
  10. PAXIL [Concomitant]
     Dosage: 50 MG, 1X/DAY
  11. LORCET-HD [Concomitant]
  12. DARVOCET-N 100 [Concomitant]

REACTIONS (5)
  - BRONCHITIS [None]
  - DECUBITUS ULCER [None]
  - INJECTION SITE INFECTION [None]
  - SKIN DISORDER [None]
  - STAPHYLOCOCCAL INFECTION [None]
